FAERS Safety Report 25611589 (Version 2)
Quarter: 2025Q3

REPORT INFORMATION
  Report Type: Report from Study
  Country: CA (occurrence: CA)
  Receive Date: 20250728
  Receipt Date: 20250901
  Transmission Date: 20251020
  Serious: Yes (Other)
  Sender: Haleon PLC
  Company Number: CA-002147023-NVSC2024CA209380

PATIENT
  Age: 54 Year
  Sex: Female

DRUGS (1)
  1. DICLOFENAC [Suspect]
     Active Substance: DICLOFENAC
     Indication: Product used for unknown indication

REACTIONS (5)
  - Mycobacterium tuberculosis complex test positive [Unknown]
  - Musculoskeletal stiffness [Recovering/Resolving]
  - Bone erosion [Unknown]
  - Pain [Recovering/Resolving]
  - Sacroiliitis [Unknown]

NARRATIVE: CASE EVENT DATE: 20241107
